FAERS Safety Report 11318639 (Version 2)
Quarter: 2015Q3

REPORT INFORMATION
  Report Type: Spontaneous
  Country: US (occurrence: US)
  Receive Date: 20150729
  Receipt Date: 20150806
  Transmission Date: 20151125
  Serious: No
  Sender: FDA-Public Use
  Company Number: US-AMGEN-USASP2015074593

PATIENT
  Age: 58 Year
  Sex: Female

DRUGS (2)
  1. ENBREL [Suspect]
     Active Substance: ETANERCEPT
     Indication: RHEUMATOID ARTHRITIS
     Dosage: UNK UNK, QWK
     Route: 065
     Dates: start: 20150717
  2. ENBREL [Suspect]
     Active Substance: ETANERCEPT
     Dosage: SEVEN DAYS APART, OR 12 DAYS APART
     Route: 065

REACTIONS (5)
  - Eye pain [Unknown]
  - Eye swelling [Unknown]
  - Eye infection [Not Recovered/Not Resolved]
  - Ocular hyperaemia [Unknown]
  - Inappropriate schedule of drug administration [Unknown]

NARRATIVE: CASE EVENT DATE: 201507
